FAERS Safety Report 5753915-6 (Version None)
Quarter: 2008Q2

REPORT INFORMATION
  Report Type: 
  Country: None (occurrence: None)
  Receive Date: 20080530
  Receipt Date: 20080529
  Transmission Date: 20081010
  Serious: Yes (Other)
  Sender: FDA-Public Use
  Company Number: B0522794A

PATIENT
  Sex: Female

DRUGS (4)
  1. SEROXAT [Suspect]
     Indication: PANIC ATTACK
     Dates: start: 19980727
  2. DIAZEPAM [Concomitant]
     Dates: start: 20070101
  3. CITALOPRAM HYDROBROMIDE [Concomitant]
     Dates: start: 20070401
  4. MIRTAZAPINE [Concomitant]
     Dates: start: 20070801

REACTIONS (26)
  - AGITATION [None]
  - AGORAPHOBIA [None]
  - AMNESIA [None]
  - ANXIETY [None]
  - CLUMSINESS [None]
  - CONFUSIONAL STATE [None]
  - COORDINATION ABNORMAL [None]
  - DIARRHOEA [None]
  - DISTURBANCE IN ATTENTION [None]
  - DIZZINESS [None]
  - DRUG WITHDRAWAL SYNDROME [None]
  - DYSKINESIA [None]
  - FATIGUE [None]
  - FEELING OF DESPAIR [None]
  - HEADACHE [None]
  - HEART RATE IRREGULAR [None]
  - INSOMNIA [None]
  - MIGRAINE [None]
  - MUSCLE SPASMS [None]
  - NAUSEA [None]
  - PALPITATIONS [None]
  - PARAESTHESIA [None]
  - RESTLESSNESS [None]
  - SUICIDAL IDEATION [None]
  - TREMOR [None]
  - VOMITING [None]
